FAERS Safety Report 7511924-0 (Version None)
Quarter: 2011Q2

REPORT INFORMATION
  Report Type: 
  Country: None (occurrence: None)
  Receive Date: 20110531
  Receipt Date: 20110513
  Transmission Date: 20111010
  Serious: No
  Sender: FDA-Public Use
  Company Number: MX-SANOFI-AVENTIS-2011SA033039

PATIENT
  Age: 28 Year
  Sex: Female
  Weight: 58.6 kg

DRUGS (1)
  1. ARAVA [Suspect]
     Indication: RHEUMATOID ARTHRITIS
     Route: 048
     Dates: start: 20090225, end: 20101201

REACTIONS (1)
  - DRUG EXPOSURE DURING PREGNANCY [None]
